FAERS Safety Report 10488451 (Version 2)
Quarter: 2014Q4

REPORT INFORMATION
  Report Type: Spontaneous
  Country: FR (occurrence: FR)
  Receive Date: 20141002
  Receipt Date: 20141009
  Transmission Date: 20150528
  Serious: Yes (Hospitalization)
  Sender: FDA-Public Use
  Company Number: FR-009507513-1409FRA014862

PATIENT
  Age: 69 Year
  Sex: Female
  Weight: 77 kg

DRUGS (11)
  1. LEVOTHYROX [Concomitant]
     Active Substance: LEVOTHYROXINE
     Dosage: 1 DF, QD
     Route: 048
  2. DIPROSONE [Suspect]
     Active Substance: BETAMETHASONE DIPROPIONATE
     Dosage: UNK
     Route: 003
     Dates: end: 20140510
  3. DEXERYL CREAM [Concomitant]
     Active Substance: GLYCERIN\PARAFFIN
     Dosage: 1 DF, BID
     Route: 003
  4. NOVO-NORM [Suspect]
     Active Substance: REPAGLINIDE
     Dosage: 2 MG, QD
     Route: 048
     Dates: end: 20140510
  5. TAHOR [Suspect]
     Active Substance: ATORVASTATIN CALCIUM
     Dosage: 1 DF, QD
     Route: 048
     Dates: end: 20140510
  6. GLUCOPHAGE [Suspect]
     Active Substance: METFORMIN HYDROCHLORIDE
     Dosage: 1 DF, QD
     Dates: end: 20140510
  7. PHYSIOTENS [Suspect]
     Active Substance: MOXONIDINE
     Dosage: 1 DF, QD
     Route: 048
     Dates: end: 20140510
  8. COAPROVEL [Suspect]
     Active Substance: HYDROCHLOROTHIAZIDE\IRBESARTAN
     Dosage: 1 DF, QD
     Route: 048
     Dates: end: 20140510
  9. TEMERIT [Concomitant]
     Active Substance: NEBIVOLOL
     Dosage: 0.25 DF, QD
     Route: 048
  10. LERCAN [Concomitant]
     Active Substance: LERCANIDIPINE
     Dosage: UNK UNK, BID
  11. VICTOZA [Suspect]
     Active Substance: LIRAGLUTIDE
     Dosage: 1.2 DF, QD
     Dates: end: 20140510

REACTIONS (1)
  - Pancreatitis [Recovering/Resolving]

NARRATIVE: CASE EVENT DATE: 20140510
